FAERS Safety Report 25576638 (Version 3)
Quarter: 2025Q3

REPORT INFORMATION
  Report Type: Report from Study
  Country: EU (occurrence: EU)
  Receive Date: 20250718
  Receipt Date: 20250925
  Transmission Date: 20251020
  Serious: No
  Sender: TRAVERE THERAPEUTICS
  Company Number: EU-BEH-2025211125

PATIENT
  Age: 43 Year
  Sex: Female

DRUGS (3)
  1. FILSPARI [Suspect]
     Active Substance: SPARSENTAN
     Indication: IgA nephropathy
     Route: 065
     Dates: start: 20250610
  2. FILSPARI [Suspect]
     Active Substance: SPARSENTAN
     Route: 065
     Dates: start: 2025
  3. FILSPARI [Suspect]
     Active Substance: SPARSENTAN
     Route: 065
     Dates: start: 2025

REACTIONS (1)
  - Hypotension [Not Recovered/Not Resolved]

NARRATIVE: CASE EVENT DATE: 20250625
